FAERS Safety Report 4696088-3 (Version None)
Quarter: 2005Q2

REPORT INFORMATION
  Report Type: 
  Country: None (occurrence: None)
  Receive Date: 20050621
  Receipt Date: 20050428
  Transmission Date: 20051028
  Serious: Yes (Hospitalization)
  Sender: FDA-Public Use
  Company Number: FR-ROCHE-403314

PATIENT
  Age: 87 Year
  Sex: Female

DRUGS (6)
  1. VALIUM [Suspect]
     Indication: DRUG USE FOR UNKNOWN INDICATION
     Dosage: 1 DOSE PER DAY.
     Route: 048
     Dates: start: 20020624, end: 20050114
  2. ACETAMINOPHEN [Concomitant]
  3. TERCIAN [Concomitant]
     Route: 048
     Dates: start: 20020624
  4. ROCEPHIN [Concomitant]
     Indication: BRONCHITIS
     Dates: start: 20050111
  5. OFLOCET [Concomitant]
     Indication: BRONCHITIS
     Route: 042
     Dates: start: 20050114
  6. SOLUPRED [Concomitant]
     Dates: start: 20050111

REACTIONS (7)
  - BRONCHITIS [None]
  - COMA [None]
  - DEPRESSED LEVEL OF CONSCIOUSNESS [None]
  - DISTURBANCE IN ATTENTION [None]
  - LABORATORY TEST ABNORMAL [None]
  - RESPIRATORY ACIDOSIS [None]
  - RESPIRATORY DISORDER [None]
